FAERS Safety Report 19705304 (Version 1)
Quarter: 2021Q3

REPORT INFORMATION
  Report Type: Spontaneous
  Country: US (occurrence: US)
  Receive Date: 20210816
  Receipt Date: 20210816
  Transmission Date: 20211014
  Serious: Yes (Death)
  Sender: FDA-Public Use
  Company Number: None

PATIENT
  Age: 44 Year
  Sex: Female
  Weight: 82.35 kg

DRUGS (7)
  1. MULTIVITAMIN [Concomitant]
     Active Substance: VITAMINS
  2. ALDACTONE [Concomitant]
     Active Substance: SPIRONOLACTONE
  3. ZITHROMAX [Concomitant]
     Active Substance: AZITHROMYCIN DIHYDRATE
  4. LEVOTHROID [Concomitant]
     Active Substance: LEVOTHYROXINE SODIUM
  5. DUPIXENT [Suspect]
     Active Substance: DUPILUMAB
     Indication: COUGH
     Dosage: ?          QUANTITY:2 INJECTION(S);OTHER FREQUENCY:TWO INJECTIONS;?
     Route: 058
     Dates: start: 20200304, end: 20200304
  6. XARELTO [Concomitant]
     Active Substance: RIVAROXABAN
  7. METHYLEPHENIDATE ER [Concomitant]
     Active Substance: METHYLPHENIDATE

REACTIONS (2)
  - Anaphylactic reaction [None]
  - Unresponsive to stimuli [None]

NARRATIVE: CASE EVENT DATE: 20200305
